FAERS Safety Report 6410273-1 (Version None)
Quarter: 2009Q4

REPORT INFORMATION
  Report Type: 
  Country: None (occurrence: None)
  Receive Date: 20091022
  Receipt Date: 20091015
  Transmission Date: 20100525
  Serious: Yes (Hospitalization, Other)
  Sender: FDA-Public Use
  Company Number: A0812649A

PATIENT
  Sex: Male

DRUGS (1)
  1. ZYBAN [Suspect]
     Indication: DRUG USE FOR UNKNOWN INDICATION
     Dosage: 150MG UNKNOWN
     Route: 048
     Dates: start: 20090815, end: 20091008

REACTIONS (10)
  - DYSPNOEA [None]
  - EXPIRED DRUG ADMINISTERED [None]
  - HYPERSENSITIVITY [None]
  - LIP SWELLING [None]
  - MEDICATION ERROR [None]
  - PHARYNGEAL OEDEMA [None]
  - PRURITUS [None]
  - RASH [None]
  - SWELLING FACE [None]
  - URTICARIA [None]
